FAERS Safety Report 6004825-0 (Version None)
Quarter: 2008Q4

REPORT INFORMATION
  Report Type: 
  Country: None (occurrence: None)
  Receive Date: 20081215
  Receipt Date: 20080923
  Transmission Date: 20090506
  Serious: Yes (Other)
  Sender: FDA-Public Use
  Company Number: 08-205

PATIENT
  Age: 67 Year
  Sex: Female
  Weight: 112.4921 kg

DRUGS (6)
  1. ALEVE [Suspect]
     Indication: PAIN IN EXTREMITY
     Dosage: 880 MG, DAILY, ORAL
     Route: 048
     Dates: start: 20080413, end: 20080417
  2. TOPROL-XL [Concomitant]
  3. DIOVAN [Concomitant]
  4. ATIVAN [Concomitant]
  5. ZYRTEC [Concomitant]
  6. HYDROXL [Concomitant]

REACTIONS (1)
  - BLOOD PRESSURE INCREASED [None]
